FAERS Safety Report 9860143 (Version 3)
Quarter: 2014Q1

REPORT INFORMATION
  Report Type: Spontaneous
  Country: CA (occurrence: CA)
  Receive Date: 20140201
  Receipt Date: 20140312
  Transmission Date: 20141002
  Serious: Yes (Other)
  Sender: FDA-Public Use
  Company Number: CA-JNJFOC-20140111587

PATIENT
  Age: 68 Year
  Sex: Female
  Weight: 107.96 kg

DRUGS (2)
  1. EXTRA STRENGTH TYLENOL NIGHTTIME CAPLETS [Suspect]
     Indication: PAIN
     Dosage: 2 TABLETS
     Route: 048
  2. METOPROLOL [Interacting]
     Indication: CARDIAC DISORDER
     Route: 065

REACTIONS (4)
  - Gastric haemorrhage [Unknown]
  - Vision blurred [Unknown]
  - Drug interaction [Unknown]
  - Haematochezia [Unknown]
